FAERS Safety Report 8511749-3 (Version None)
Quarter: 2012Q3

REPORT INFORMATION
  Report Type: 
  Country: None (occurrence: None)
  Receive Date: 20120711
  Receipt Date: 20120711
  Transmission Date: 20120928
  Serious: Yes (Hospitalization, Other)
  Sender: FDA-Public Use
  Company Number: None

PATIENT
  Age: 32 Year
  Sex: Female
  Weight: 93 kg

DRUGS (1)
  1. JOHNSON'S BABY POWDER [Suspect]
     Dosage: 1X, TOPICAL
     Route: 061

REACTIONS (4)
  - INCORRECT ROUTE OF DRUG ADMINISTRATION [None]
  - LUNG NEOPLASM [None]
  - ACCIDENTAL EXPOSURE [None]
  - BRONCHITIS CHEMICAL [None]
